FAERS Safety Report 23019631 (Version 1)
Quarter: 2023Q4

REPORT INFORMATION
  Report Type: Spontaneous
  Country: US (occurrence: US)
  Receive Date: 20231003
  Receipt Date: 20231003
  Transmission Date: 20240110
  Serious: No
  Sender: FDA-Public Use
  Company Number: US-AMGEN-USASP2023174138

PATIENT

DRUGS (4)
  1. XGEVA [Suspect]
     Active Substance: DENOSUMAB
     Indication: Product used for unknown indication
     Dosage: UNK
     Route: 065
  2. LUPRON [Concomitant]
     Active Substance: LEUPROLIDE ACETATE
     Dosage: 3 MTH INJECTION
  3. DOCETAXEL [Concomitant]
     Active Substance: DOCETAXEL
  4. PREDNISONE [Concomitant]
     Active Substance: PREDNISONE

REACTIONS (8)
  - Pelvic pain [Unknown]
  - Pain in jaw [Unknown]
  - Pollakiuria [Unknown]
  - Fatigue [Unknown]
  - Flatulence [Unknown]
  - Decreased appetite [Unknown]
  - Insomnia [Unknown]
  - Crying [Unknown]
